FAERS Safety Report 5735460-7 (Version None)
Quarter: 2008Q2

REPORT INFORMATION
  Report Type: 
  Country: None (occurrence: None)
  Receive Date: 20080512
  Receipt Date: 20080208
  Transmission Date: 20081010
  Serious: Yes (Hospitalization, Other)
  Sender: FDA-Public Use
  Company Number: BE-PFIZER INC-2007107402

PATIENT
  Sex: Female
  Weight: 68 kg

DRUGS (4)
  1. CHANTIX [Suspect]
     Indication: SMOKING CESSATION THERAPY
     Route: 048
     Dates: start: 20071117, end: 20071127
  2. RISPERDAL [Concomitant]
     Route: 030
  3. SEROQUEL [Concomitant]
     Route: 048
  4. PAROXETINE HCL [Concomitant]
     Route: 048
     Dates: start: 20071102, end: 20071127

REACTIONS (1)
  - ABNORMAL BEHAVIOUR [None]
